FAERS Safety Report 6377084-7 (Version None)
Quarter: 2009Q3

REPORT INFORMATION
  Report Type: 
  Country: None (occurrence: None)
  Receive Date: 20090925
  Receipt Date: 20090915
  Transmission Date: 20100115
  Serious: Yes (Life-Threatening, Hospitalization)
  Sender: FDA-Public Use
  Company Number: DE-BAYER-200932442GPV

PATIENT
  Age: 76 Year
  Sex: Male
  Weight: 85 kg

DRUGS (12)
  1. ASPIRIN [Interacting]
     Indication: CORONARY ARTERY DISEASE
     Dosage: TOTAL DAILY DOSE: 100 MG  UNIT DOSE: 100 MG
     Route: 048
     Dates: start: 20090311
  2. IBUPROFEN [Interacting]
     Indication: PAIN
     Dosage: TOTAL DAILY DOSE: 1600 MG
     Route: 048
     Dates: start: 20090311, end: 20090624
  3. METFORMIN HYDROCHLORIDE [Suspect]
     Indication: TYPE 2 DIABETES MELLITUS
     Dosage: TOTAL DAILY DOSE: 2000 MG
     Route: 048
     Dates: start: 20090311, end: 20090624
  4. XIPAMIDE [Interacting]
     Indication: HYPERTENSION
     Dosage: TOTAL DAILY DOSE: 10 MG
     Route: 048
     Dates: start: 20090311
  5. ACTRAPID INNOLET [Concomitant]
     Indication: TYPE 2 DIABETES MELLITUS
     Route: 058
     Dates: start: 20090311
  6. BISOPROLOL FUMARATE [Concomitant]
     Indication: HYPERTENSION
     Dosage: TOTAL DAILY DOSE: 5 MG
     Route: 048
     Dates: start: 20090702
  7. BISOPROLOL FUMARATE [Concomitant]
     Dosage: TOTAL DAILY DOSE: 10 MG
     Route: 048
     Dates: start: 20090311, end: 20090624
  8. DIGITOXIN INJ [Concomitant]
     Indication: TACHYARRHYTHMIA
     Dosage: TOTAL DAILY DOSE: 0.07 MG
     Route: 048
     Dates: start: 20090311, end: 20090624
  9. OMEPRAZOLE [Concomitant]
     Indication: PROPHYLAXIS AGAINST GASTROINTESTINAL ULCER
     Dosage: TOTAL DAILY DOSE: 20 MG
     Route: 048
     Dates: start: 20090311
  10. PROTAPHANE MC [Concomitant]
     Indication: TYPE 2 DIABETES MELLITUS
     Dosage: TOTAL DAILY DOSE: 40 IU
     Route: 058
     Dates: start: 20090311
  11. SIMVASTATIN [Concomitant]
  12. PENTAERYTHRITOL TETRANITRATE [Concomitant]

REACTIONS (8)
  - ASTHENIA [None]
  - BLOOD GLUCOSE INCREASED [None]
  - DIZZINESS [None]
  - DYSPNOEA [None]
  - HYPERKALAEMIA [None]
  - NIGHT SWEATS [None]
  - RENAL FAILURE ACUTE [None]
  - RENAL IMPAIRMENT [None]
